FAERS Safety Report 6223313-X (Version None)
Quarter: 2009Q2

REPORT INFORMATION
  Report Type: 
  Country: None (occurrence: None)
  Receive Date: 20090609
  Receipt Date: 20090529
  Transmission Date: 20091009
  Serious: Yes (Life-Threatening)
  Sender: FDA-Public Use
  Company Number: JP-WYE-H09554209

PATIENT
  Age: 25 Year
  Sex: Male

DRUGS (2)
  1. ZOSYN [Suspect]
     Indication: PNEUMONIA ASPIRATION
     Dosage: 4.5 G 2X PER 1 DAY INTRAVENOUS DRIP
     Route: 041
     Dates: start: 20090428, end: 20090428
  2. WARFARIN SODIUM [Suspect]
     Dosage: ORAL
     Route: 048

REACTIONS (2)
  - PULMONARY HAEMORRHAGE [None]
  - RESPIRATORY ARREST [None]
